FAERS Safety Report 12171407 (Version 3)
Quarter: 2016Q2

REPORT INFORMATION
  Report Type: Spontaneous
  Country: JP (occurrence: JP)
  Receive Date: 20160311
  Receipt Date: 20160401
  Transmission Date: 20160815
  Serious: Yes (Other)
  Sender: FDA-Public Use
  Company Number: JP-JAZZ-2016-JP-004506

PATIENT
  Age: 11 Year
  Sex: Male
  Weight: 26 kg

DRUGS (1)
  1. ERWINASE [Suspect]
     Active Substance: ASPARAGINASE ERWINIA CHRYSANTHEMI
     Indication: ACUTE LYMPHOCYTIC LEUKAEMIA
     Dosage: UNK

REACTIONS (2)
  - Pancreatic pseudocyst [Recovering/Resolving]
  - Pancreatitis acute [Recovered/Resolved with Sequelae]
